FAERS Safety Report 18723368 (Version 1)
Quarter: 2021Q1

REPORT INFORMATION
  Report Type: Spontaneous
  Country: US (occurrence: US)
  Receive Date: 20210108
  Receipt Date: 20210108
  Transmission Date: 20210419
  Serious: No
  Sender: FDA-Public Use
  Company Number: None

PATIENT
  Sex: Female

DRUGS (1)
  1. CAPECITABINE 500MG NOVADOZ PHARMACEUTICALS [Suspect]
     Active Substance: CAPECITABINE
     Indication: BREAST CANCER
     Route: 048
     Dates: start: 202009

REACTIONS (8)
  - Weight decreased [None]
  - Sinus disorder [None]
  - Skin discolouration [None]
  - Skin exfoliation [None]
  - Diarrhoea [None]
  - Dizziness [None]
  - Dry eye [None]
  - Fatigue [None]
